FAERS Safety Report 13684899 (Version 2)
Quarter: 2018Q1

REPORT INFORMATION
  Report Type: Other
  Country: IT (occurrence: IT)
  Receive Date: 20170623
  Receipt Date: 20180301
  Transmission Date: 20180508
  Serious: Yes (Hospitalization, Other)
  Sender: FDA-Public Use
  Company Number: IT-CELLTRION INC.-2017IT008041

PATIENT

DRUGS (1)
  1. REMSIMA [Suspect]
     Active Substance: INFLIXIMAB
     Indication: PSORIASIS
     Dosage: 435 MG, CYCLIC
     Route: 042
     Dates: start: 20170213, end: 20170213

REACTIONS (7)
  - Cytomegalovirus infection [Unknown]
  - Respiratory failure [Not Recovered/Not Resolved]
  - Aspergillus infection [Unknown]
  - Pneumomediastinum [Not Recovered/Not Resolved]
  - Pyrexia [Not Recovered/Not Resolved]
  - Bacterial infection [Unknown]
  - Dyspnoea [Not Recovered/Not Resolved]

NARRATIVE: CASE EVENT DATE: 20170301
